FAERS Safety Report 25477936 (Version 1)
Quarter: 2025Q2

REPORT INFORMATION
  Report Type: Spontaneous
  Country: CA (occurrence: None)
  Receive Date: 20250625
  Receipt Date: 20250625
  Transmission Date: 20250717
  Serious: Yes (Other)
  Sender: ORION
  Company Number: CA-PFIZER INC-202500072409

PATIENT
  Age: 64 Year
  Sex: Female

DRUGS (4)
  1. METHOTREXATE [Suspect]
     Active Substance: METHOTREXATE
     Indication: Rheumatoid arthritis
     Dates: start: 2005
  2. METHOTREXATE [Suspect]
     Active Substance: METHOTREXATE
     Dates: start: 2006
  3. METHOTREXATE [Suspect]
     Active Substance: METHOTREXATE
     Dates: end: 202503
  4. METHOTREXATE [Suspect]
     Active Substance: METHOTREXATE
     Dates: start: 2006, end: 202502

REACTIONS (13)
  - Hepatic cirrhosis [Unknown]
  - Hepatic fibrosis [Unknown]
  - Drug effect less than expected [Unknown]
  - Inappropriate schedule of product administration [Unknown]
  - Hepatic steatosis [Unknown]
  - Rheumatoid arthritis [Unknown]
  - Aphonia [Unknown]
  - Cough [Unknown]
  - Upper-airway cough syndrome [Unknown]
  - Drug hypersensitivity [Unknown]
  - Weight decreased [Unknown]
  - Gastrooesophageal reflux disease [Unknown]
  - Blood test abnormal [Unknown]
